FAERS Safety Report 5028587-9 (Version None)
Quarter: 2006Q2

REPORT INFORMATION
  Report Type: 
  Country: None (occurrence: None)
  Receive Date: 20060615
  Receipt Date: 20060615
  Transmission Date: 20061013
  Serious: Yes (Hospitalization)
  Sender: FDA-Public Use
  Company Number: None

PATIENT
  Age: 64 Year
  Sex: Female
  Weight: 61.6892 kg

DRUGS (2)
  1. ASPIRIN [Suspect]
     Indication: THROMBOPHLEBITIS SUPERFICIAL
     Dosage: 325MG PO DAILY  SINCE DECEMBER
     Route: 048
  2. CLOPIDOGREL [Suspect]
     Dosage: 75 MG PO DAILY  SINCE DECEMBER
     Route: 048

REACTIONS (5)
  - DUODENAL ULCER [None]
  - FAECES DISCOLOURED [None]
  - GASTRIC ULCER [None]
  - HAEMOGLOBIN DECREASED [None]
  - THROMBOSIS [None]
